FAERS Safety Report 9562858 (Version 2)
Quarter: 2014Q1

REPORT INFORMATION
  Report Type: Spontaneous
  Country: GB (occurrence: GB)
  Receive Date: 20130927
  Receipt Date: 20140211
  Transmission Date: 20141002
  Serious: Yes (Disabling, Other)
  Sender: FDA-Public Use
  Company Number: PHHY2013GB102388

PATIENT
  Age: 69 Year
  Sex: Female
  Weight: 69.85 kg

DRUGS (5)
  1. ANASTROZOLE [Suspect]
     Indication: POSTOPERATIVE CARE
     Dates: end: 20130715
  2. TAMOXIFEN [Suspect]
     Dates: start: 20130715
  3. AMLODIPINE [Concomitant]
  4. ASPIRIN [Concomitant]
  5. LOSARTAN [Concomitant]

REACTIONS (5)
  - Vascular compression [Recovered/Resolved]
  - Pain in extremity [Recovering/Resolving]
  - Abdominal discomfort [Not Recovered/Not Resolved]
  - Fatigue [Not Recovered/Not Resolved]
  - Arthralgia [Recovered/Resolved]
